FAERS Safety Report 9477515 (Version 2)
Quarter: 2013Q3

REPORT INFORMATION
  Report Type: Spontaneous
  Country: US (occurrence: US)
  Receive Date: 20130827
  Receipt Date: 20130917
  Transmission Date: 20140515
  Serious: Yes (Other)
  Sender: FDA-Public Use
  Company Number: US-ACCORD-019093

PATIENT
  Age: 62 Year
  Sex: Male
  Weight: 72.73 kg

DRUGS (4)
  1. BICALUTAMIDE [Suspect]
     Indication: PROSTATE CANCER
     Dosage: NDC / DIN - 16729-023-10
     Route: 048
     Dates: start: 20130525
  2. ELIGARD [Concomitant]
     Indication: PRODUCT USED FOR UNKNOWN INDICATION
     Route: 065
  3. FENTANYL [Concomitant]
     Indication: PRODUCT USED FOR UNKNOWN INDICATION
     Dosage: FENTANYL PATCH
     Route: 065
  4. FLOMAX [Concomitant]
     Indication: PRODUCT USED FOR UNKNOWN INDICATION
     Route: 065

REACTIONS (2)
  - Drug ineffective [Not Recovered/Not Resolved]
  - Night sweats [Unknown]
